FAERS Safety Report 18068005 (Version 2)
Quarter: 2020Q3

REPORT INFORMATION
  Report Type: Spontaneous
  Country: JP (occurrence: JP)
  Receive Date: 20200725
  Receipt Date: 20200929
  Transmission Date: 20201103
  Serious: Yes (Hospitalization, Other)
  Sender: FDA-Public Use
  Company Number: JP-AMGEN-JPNSP2020118005

PATIENT
  Age: 66 Year
  Sex: Male
  Weight: 71 kg

DRUGS (23)
  1. ORKEDIA [Concomitant]
     Active Substance: EVOCALCET
     Dosage: 2 MG, EVERYDAY
     Route: 048
     Dates: start: 20190716, end: 20190728
  2. FOSRENOL [Concomitant]
     Active Substance: LANTHANUM CARBONATE
     Dosage: 1500 MG, EVERYDAY
     Route: 048
  3. ORKEDIA [Concomitant]
     Active Substance: EVOCALCET
     Dosage: 3 MG, EVERYDAY
     Route: 048
     Dates: start: 20190729, end: 20190819
  4. PARSABIV [Suspect]
     Active Substance: ETELCALCETIDE HYDROCHLORIDE
     Indication: HYPERPARATHYROIDISM SECONDARY
     Dosage: 5 MG, Q56H
     Route: 010
     Dates: start: 20181016, end: 20181224
  5. ORKEDIA [Concomitant]
     Active Substance: EVOCALCET
     Dosage: 4 MG, EVERYDAY
     Route: 048
     Dates: start: 20190820, end: 20190922
  6. ORKEDIA [Concomitant]
     Active Substance: EVOCALCET
     Dosage: 12 MG, EVERYDAY
     Route: 048
     Dates: start: 20191207
  7. CINACALCET HCL [Concomitant]
     Active Substance: CINACALCET HYDROCHLORIDE
     Dosage: 75 MG, EVERYDAY
     Route: 048
     Dates: start: 20181225, end: 20190715
  8. NESP [Concomitant]
     Active Substance: DARBEPOETIN ALFA
     Dosage: 20 UG, QW
     Route: 065
     Dates: end: 20181023
  9. MAXACALCITOL [Concomitant]
     Active Substance: MAXACALCITOL
     Dosage: 5 UG, QW
     Route: 065
     Dates: end: 20190209
  10. CALCITRIOL. [Concomitant]
     Active Substance: CALCITRIOL
     Dosage: 0.5 UG, QW
     Route: 042
     Dates: start: 20190820, end: 20200309
  11. CALCITRIOL. [Concomitant]
     Active Substance: CALCITRIOL
     Dosage: 0.5 UG, Q56H
     Route: 042
     Dates: start: 20200611, end: 20200713
  12. CINACALCET HCL [Concomitant]
     Active Substance: CINACALCET HYDROCHLORIDE
     Dosage: 75 MG, EVERYDAY
     Route: 048
     Dates: end: 20181013
  13. NESP [Concomitant]
     Active Substance: DARBEPOETIN ALFA
     Dosage: 10 UG, QW
     Route: 065
     Dates: start: 20181030
  14. MAXACALCITOL [Concomitant]
     Active Substance: MAXACALCITOL
     Dosage: 5 UG, Q84H
     Route: 065
     Dates: start: 20190620, end: 20190819
  15. CALTAN [Concomitant]
     Active Substance: CALCIUM CARBONATE
     Dosage: 1500 MG, EVERYDAY
     Route: 048
     Dates: start: 20190716
  16. MAXACALCITOL [Concomitant]
     Active Substance: MAXACALCITOL
     Dosage: 5 UG, Q56H
     Route: 065
     Dates: start: 20190212, end: 20190619
  17. CALCITRIOL. [Concomitant]
     Active Substance: CALCITRIOL
     Dosage: 1.0 UG, Q56H
     Route: 042
     Dates: start: 20200714
  18. ORKEDIA [Concomitant]
     Active Substance: EVOCALCET
     Dosage: 5 MG, EVERYDAY
     Route: 048
     Dates: start: 20190923, end: 20191014
  19. CALCITRIOL. [Concomitant]
     Active Substance: CALCITRIOL
     Dosage: 0.5 UG, Q84H
     Route: 042
     Dates: start: 20200310, end: 20200610
  20. ORKEDIA [Concomitant]
     Active Substance: EVOCALCET
     Dosage: 10 MG, EVERYDAY
     Route: 048
     Dates: start: 20191119, end: 20191206
  21. P?TOL [SUCROFERRIC OXYHYDROXIDE] [Concomitant]
     Active Substance: SUCROFERRIC OXYHYDROXIDE
     Dosage: 500 MG, EVERYDAY
     Route: 048
  22. ORKEDIA [Concomitant]
     Active Substance: EVOCALCET
     Dosage: 7 MG, EVERYDAY
     Route: 048
     Dates: start: 20191015, end: 20191118
  23. CALTAN [Concomitant]
     Active Substance: CALCIUM CARBONATE
     Dosage: 3000 MG, EVERYDAY
     Route: 048
     Dates: end: 20190715

REACTIONS (1)
  - Shunt occlusion [Recovered/Resolved]

NARRATIVE: CASE EVENT DATE: 20190822
